FAERS Safety Report 9444462 (Version 1)
Quarter: 2013Q3

REPORT INFORMATION
  Report Type: Spontaneous
  Country: US (occurrence: None)
  Receive Date: 20130805
  Receipt Date: 20130805
  Transmission Date: 20140515
  Serious: Yes (Life-Threatening)
  Sender: FDA-Public Use
  Company Number: 20130370

PATIENT
  Age: 26 Year
  Sex: Male

DRUGS (5)
  1. CLONIDINE HYDROCHLORIDE [Suspect]
     Dosage: 0.2 MG UNKNOWN
  2. NALOXONE [Suspect]
     Dosage: 30 MG UNKNOWN UNK / UNK THERAPY DATES
  3. PROPOFOL [Suspect]
     Dosage: 100 MG  UNKNOWN
  4. INHALATIONAL ANAESTHETIC [Suspect]
     Dosage: UNKNOWN RESPIRATORY  UNK/ UNK THERAPY DATES
  5. NITROUS OXIDE [Suspect]
     Dosage: UNKNOWN UNKNOWN

REACTIONS (5)
  - Hypoxic-ischaemic encephalopathy [None]
  - Pulseless electrical activity [None]
  - Off label use [None]
  - Cardiac arrest [None]
  - Necrotising fasciitis [None]
